FAERS Safety Report 16790139 (Version 2)
Quarter: 2020Q3

REPORT INFORMATION
  Report Type: Report from Study
  Country: US (occurrence: US)
  Receive Date: 20190910
  Receipt Date: 20191122
  Transmission Date: 20201104
  Serious: Yes (Hospitalization)
  Sender: FDA-Public Use
  Company Number: US-JNJFOC-20190422823

PATIENT
  Age: 76 Year
  Sex: Male
  Weight: 74.6 kg

DRUGS (6)
  1. DARATUMUMAB [Suspect]
     Active Substance: DARATUMUMAB
     Indication: ACUTE MYELOID LEUKAEMIA
     Route: 042
     Dates: start: 20180803
  2. DARATUMUMAB [Suspect]
     Active Substance: DARATUMUMAB
     Route: 042
     Dates: start: 20190423
  3. AZITHROMYCIN ANHYDROUS. [Concomitant]
     Active Substance: AZITHROMYCIN ANHYDROUS
     Dates: start: 20190327, end: 20190331
  4. TAMIBAROTENE [Suspect]
     Active Substance: TAMIBAROTENE
     Route: 048
     Dates: start: 20190423
  5. TAMIBAROTENE [Suspect]
     Active Substance: TAMIBAROTENE
     Indication: ACUTE MYELOID LEUKAEMIA
     Route: 048
     Dates: start: 20180727, end: 20190312
  6. TAMIBAROTENE [Suspect]
     Active Substance: TAMIBAROTENE
     Route: 048
     Dates: start: 20190314, end: 20190404

REACTIONS (1)
  - Pneumonia [Recovered/Resolved]

NARRATIVE: CASE EVENT DATE: 20190404
